FAERS Safety Report 17560045 (Version 1)
Quarter: 2020Q1

REPORT INFORMATION
  Report Type: Spontaneous
  Country: GB (occurrence: GB)
  Receive Date: 20200319
  Receipt Date: 20200319
  Transmission Date: 20200409
  Serious: Yes (Other)
  Sender: FDA-Public Use
  Company Number: GB-ACCORD-175789

PATIENT
  Age: 36 Year
  Sex: Female
  Weight: 73 kg

DRUGS (3)
  1. SERTRALINE [Suspect]
     Active Substance: SERTRALINE HYDROCHLORIDE
     Indication: DEPRESSION SUICIDAL
     Route: 048
     Dates: start: 20120901
  2. SERTRALINE [Suspect]
     Active Substance: SERTRALINE HYDROCHLORIDE
     Indication: DEPRESSION SUICIDAL
     Route: 048
  3. CYCLIZINE [Concomitant]
     Active Substance: CYCLIZINE

REACTIONS (4)
  - Hyperemesis gravidarum [Unknown]
  - Vomiting [Recovered/Resolved]
  - Maternal exposure during pregnancy [Unknown]
  - Dizziness [Unknown]

NARRATIVE: CASE EVENT DATE: 2015
